FAERS Safety Report 12776024 (Version 1)
Quarter: 2016Q3

REPORT INFORMATION
  Report Type: Spontaneous
  Country: US (occurrence: US)
  Receive Date: 20160923
  Receipt Date: 20160923
  Transmission Date: 20161109
  Serious: No
  Sender: FDA-Public Use
  Company Number: US-BAYER-2016-183851

PATIENT
  Age: 80 Year
  Sex: Female
  Weight: 90.7 kg

DRUGS (5)
  1. OMEPRAZOLE. [Concomitant]
     Active Substance: OMEPRAZOLE
  2. TEKTURNA [Concomitant]
     Active Substance: ALISKIREN HEMIFUMARATE
  3. SIMVASTATIN. [Concomitant]
     Active Substance: SIMVASTATIN
  4. GUAIFENESIN. [Concomitant]
     Active Substance: GUAIFENESIN
  5. MIRALAX [Suspect]
     Active Substance: POLYETHYLENE GLYCOL 3350
     Indication: GASTROINTESTINAL TRACT IRRITATION
     Dosage: 1 DOSE
     Route: 048
     Dates: start: 20160918, end: 20160920

REACTIONS (1)
  - Gastrointestinal tract irritation [None]

NARRATIVE: CASE EVENT DATE: 20160918
